FAERS Safety Report 6904171-4 (Version None)
Quarter: 2010Q3

REPORT INFORMATION
  Report Type: 
  Country: None (occurrence: None)
  Receive Date: 20100804
  Receipt Date: 20090319
  Transmission Date: 20110219
  Serious: No
  Sender: FDA-Public Use
  Company Number: US-PFIZER INC-2008155426

PATIENT
  Sex: Male
  Weight: 81.6 kg

DRUGS (8)
  1. LYRICA [Suspect]
     Indication: HERPES ZOSTER
     Dosage: 50 MG, (2-3)X/DAY
     Route: 048
     Dates: start: 20081202, end: 20081210
  2. TAMSULOSIN HYDROCHLORIDE [Concomitant]
     Dosage: UNK
  3. GLIPIZIDE [Concomitant]
     Dosage: UNK
  4. PROSCAR [Concomitant]
     Dosage: UNK
  5. ACCUPRIL [Concomitant]
     Dosage: UNK
  6. TOPROL-XL [Concomitant]
     Dosage: UNK
  7. TRICOR [Concomitant]
  8. VYTORIN [Concomitant]
     Dosage: UNK

REACTIONS (2)
  - INCONTINENCE [None]
  - URINE OUTPUT DECREASED [None]
